FAERS Safety Report 11913905 (Version 4)
Quarter: 2016Q1

REPORT INFORMATION
  Report Type: Spontaneous
  Country: BR (occurrence: BR)
  Receive Date: 20160113
  Receipt Date: 20160316
  Transmission Date: 20160526
  Serious: Yes (Disabling)
  Sender: FDA-Public Use
  Company Number: BR-ASTRAZENECA-2016SE01337

PATIENT
  Age: 82 Year
  Sex: Female

DRUGS (12)
  1. PULMICORT TURBUHALER [Suspect]
     Active Substance: BUDESONIDE
     Indication: CHRONIC OBSTRUCTIVE PULMONARY DISEASE
     Dosage: 0.50 MG/ML,TWO TIMES A DAY
     Route: 055
     Dates: start: 2014
  2. DAFLON [Concomitant]
     Active Substance: DIOSMIN\HESPERIDIN
  3. METICORTEN [Concomitant]
     Active Substance: PREDNISONE
  4. BAMIFIX [Concomitant]
     Active Substance: BAMIFYLLINE HYDROCHLORIDE
  5. BEROTEC [Concomitant]
     Active Substance: FENOTEROL HYDROBROMIDE
  6. ATROVENT [Concomitant]
     Active Substance: IPRATROPIUM BROMIDE
  7. INSULIN [Concomitant]
     Active Substance: INSULIN NOS
  8. PANTOPRAZOLE [Concomitant]
     Active Substance: PANTOPRAZOLE SODIUM
  9. ROSUVASTATIN [Suspect]
     Active Substance: ROSUVASTATIN
     Route: 048
  10. PERIDAL [Concomitant]
  11. LASIX [Concomitant]
     Active Substance: FUROSEMIDE
  12. MICARDIS [Concomitant]
     Active Substance: TELMISARTAN

REACTIONS (2)
  - Eschar [Recovering/Resolving]
  - Muscular weakness [Not Recovered/Not Resolved]
